FAERS Safety Report 6109018-4 (Version None)
Quarter: 2009Q1

REPORT INFORMATION
  Report Type: 
  Country: None (occurrence: None)
  Receive Date: 20090306
  Receipt Date: 20090304
  Transmission Date: 20090719
  Serious: Yes (Other)
  Sender: FDA-Public Use
  Company Number: 186644USA

PATIENT
  Age: 15 Year
  Sex: Male

DRUGS (4)
  1. CLARAVIS [Suspect]
     Indication: ACNE
     Dosage: 2 CAPS X 5 DAYS, 1 CAP X 2 DAYS (40 MG, 12 IN 1 WK), ORAL
     Route: 048
     Dates: start: 20081210, end: 20090211
  2. ISOTRETINOIN [Suspect]
     Indication: ACNE
     Dosage: 2 CAPS X 5 DAYS, 1 CAPS X 2 DAYS, (40 MG, 12 IN 1 WK), ORAL
     Route: 048
  3. FLUOXETINE HYDROCHLORIDE [Concomitant]
  4. LORATADINE [Concomitant]

REACTIONS (2)
  - DEPRESSION [None]
  - SUICIDAL IDEATION [None]
